FAERS Safety Report 8124795-9 (Version None)
Quarter: 2012Q1

REPORT INFORMATION
  Report Type: 
  Country: None (occurrence: None)
  Receive Date: 20120209
  Receipt Date: 20120127
  Transmission Date: 20120608
  Serious: Yes (Death, Hospitalization)
  Sender: FDA-Public Use
  Company Number: JP-JNJFOC-20120113415

PATIENT
  Sex: Female
  Weight: 53 kg

DRUGS (6)
  1. OXYCODONE HCL [Suspect]
     Indication: CANCER PAIN
     Route: 048
     Dates: start: 20120126, end: 20120127
  2. LOXOPROFEN [Concomitant]
     Indication: CANCER PAIN
     Route: 048
     Dates: end: 20120127
  3. LASIX [Concomitant]
     Indication: OEDEMA PERIPHERAL
     Route: 048
     Dates: end: 20120126
  4. DIOVAN [Concomitant]
     Indication: HYPERTENSION
     Route: 048
  5. RABEPRAZOLE SODIUM [Concomitant]
     Indication: GASTRITIS
     Route: 048
     Dates: end: 20120127
  6. TAPENTADOL HYDROCHLORIDE [Suspect]
     Indication: CANCER PAIN
     Route: 048
     Dates: start: 20120126, end: 20120127

REACTIONS (1)
  - DISEASE PROGRESSION [None]
